FAERS Safety Report 16965193 (Version 1)
Quarter: 2019Q4

REPORT INFORMATION
  Report Type: Spontaneous
  Country: CN (occurrence: CN)
  Receive Date: 20191028
  Receipt Date: 20191028
  Transmission Date: 20200122
  Serious: Yes (Other)
  Sender: FDA-Public Use
  Company Number: CN-SA-2019SA293550

PATIENT
  Age: 50 Year
  Sex: Male
  Weight: 52 kg

DRUGS (2)
  1. GLUCOSE INJECTION [Concomitant]
     Active Substance: DEXTROSE
     Indication: COLON CANCER
     Dosage: 500 ML, QD
     Route: 041
     Dates: start: 20191015, end: 20191015
  2. ELOXATIN [Suspect]
     Active Substance: OXALIPLATIN
     Indication: COLON CANCER
     Dosage: 140 MG, QD
     Route: 041
     Dates: start: 20191015, end: 20191015

REACTIONS (5)
  - Dizziness [Recovering/Resolving]
  - Papule [Recovering/Resolving]
  - Dyspnoea [Recovering/Resolving]
  - Pruritus [Recovering/Resolving]
  - Erythema [Recovering/Resolving]

NARRATIVE: CASE EVENT DATE: 20191015
